FAERS Safety Report 21879493 (Version 1)
Quarter: 2023Q1

REPORT INFORMATION
  Report Type: Spontaneous
  Country: CA (occurrence: CA)
  Receive Date: 20230118
  Receipt Date: 20230118
  Transmission Date: 20230418
  Serious: Yes (Other)
  Sender: FDA-Public Use
  Company Number: CA-ABBVIE-4274878

PATIENT
  Age: 34 Year
  Sex: Female

DRUGS (1)
  1. HUMIRA [Suspect]
     Active Substance: ADALIMUMAB
     Indication: Psoriatic arthropathy
     Route: 058

REACTIONS (15)
  - Back pain [Unknown]
  - Thirst [Unknown]
  - Diarrhoea [Unknown]
  - Skin warm [Unknown]
  - Faeces discoloured [Unknown]
  - COVID-19 [Unknown]
  - Pruritus [Unknown]
  - Product dose omission issue [Unknown]
  - Insomnia [Unknown]
  - Rhinorrhoea [Unknown]
  - Intervertebral disc protrusion [Unknown]
  - Blood sodium decreased [Unknown]
  - Nasal congestion [Unknown]
  - Water intoxication [Unknown]
  - Dysphonia [Unknown]
